FAERS Safety Report 6750977-4 (Version None)
Quarter: 2010Q2

REPORT INFORMATION
  Report Type: 
  Country: None (occurrence: None)
  Receive Date: 20100526
  Receipt Date: 20100520
  Transmission Date: 20101027
  Serious: Yes (Life-Threatening, Hospitalization)
  Sender: FDA-Public Use
  Company Number: 2010SP023841

PATIENT
  Age: 39 Year
  Sex: Female

DRUGS (1)
  1. PUREGON (FOLLITROPIN BETA /01348901/) [Suspect]
     Indication: OVARIAN HYPERSTIMULATION SYNDROME
     Dosage: 50 IU;QD;ID
     Route: 026
     Dates: start: 20100404, end: 20100405

REACTIONS (8)
  - ABNORMAL BEHAVIOUR [None]
  - CARDIO-RESPIRATORY ARREST [None]
  - DISTURBANCE IN ATTENTION [None]
  - ECHOLALIA [None]
  - EXECUTIVE DYSFUNCTION [None]
  - FATIGUE [None]
  - MEMORY IMPAIRMENT [None]
  - VENTRICULAR FIBRILLATION [None]
